FAERS Safety Report 10253201 (Version 1)
Quarter: 2014Q2

REPORT INFORMATION
  Report Type: Spontaneous
  Country: ES (occurrence: ES)
  Receive Date: 20140623
  Receipt Date: 20140623
  Transmission Date: 20141212
  Serious: Yes (Other)
  Sender: FDA-Public Use
  Company Number: ES-BRISTOL-MYERS SQUIBB COMPANY-21041447

PATIENT
  Sex: Male

DRUGS (1)
  1. ELIQUIS [Suspect]
     Route: 048

REACTIONS (2)
  - Colon cancer [Unknown]
  - Rectal haemorrhage [Recovered/Resolved]
